FAERS Safety Report 6641848-2 (Version None)
Quarter: 2010Q1

REPORT INFORMATION
  Report Type: 
  Country: None (occurrence: None)
  Receive Date: 20100319
  Receipt Date: 20100309
  Transmission Date: 20100710
  Serious: Yes (Other)
  Sender: FDA-Public Use
  Company Number: US-JNJFOC-20100304859

PATIENT
  Age: 74 Year
  Sex: Male

DRUGS (2)
  1. RISPERIDONE [Suspect]
     Indication: DRUG USE FOR UNKNOWN INDICATION
     Route: 065
  2. RISPERIDONE [Suspect]
     Route: 065

REACTIONS (4)
  - CONTUSION [None]
  - EXTRAPYRAMIDAL DISORDER [None]
  - FALL [None]
  - PARKINSONISM [None]
